FAERS Safety Report 6824694-6 (Version None)
Quarter: 2010Q3

REPORT INFORMATION
  Report Type: 
  Country: None (occurrence: None)
  Receive Date: 20100708
  Receipt Date: 20061107
  Transmission Date: 20110219
  Serious: No
  Sender: FDA-Public Use
  Company Number: US-PFIZER INC-2006139790

PATIENT
  Sex: Female
  Weight: 54.88 kg

DRUGS (9)
  1. CHANTIX [Suspect]
     Indication: SMOKING CESSATION THERAPY
     Dates: start: 20061020
  2. EFFEXOR [Concomitant]
  3. DURAGESIC-100 [Concomitant]
     Route: 062
  4. PROTONIX [Concomitant]
  5. POLYETHYLENE GLYCOL [Concomitant]
  6. OXYCODONE HCL [Concomitant]
  7. ALPRAZOLAM [Concomitant]
     Indication: PANIC DISORDER
  8. REGLAN [Concomitant]
     Indication: GASTROINTESTINAL MOTILITY DISORDER
     Dates: start: 20060101, end: 20060101
  9. ZELNORM [Concomitant]
     Indication: GASTROINTESTINAL MOTILITY DISORDER

REACTIONS (1)
  - NAUSEA [None]
